FAERS Safety Report 8335297-9 (Version None)
Quarter: 2012Q2

REPORT INFORMATION
  Report Type: 
  Country: None (occurrence: None)
  Receive Date: 20120503
  Receipt Date: 20120418
  Transmission Date: 20120825
  Serious: Yes (Life-Threatening, Hospitalization, Other)
  Sender: FDA-Public Use
  Company Number: ES-ELI_LILLY_AND_COMPANY-ES201205000960

PATIENT
  Age: 27 Year
  Sex: Female

DRUGS (6)
  1. INVEGA [Concomitant]
     Indication: INTENTIONAL OVERDOSE
     Dosage: 3 MG, UNK
     Route: 048
     Dates: start: 20110824, end: 20110824
  2. SEROQUEL [Concomitant]
     Indication: INTENTIONAL OVERDOSE
     Dosage: 25 MG, UNK
     Route: 048
     Dates: start: 20110824, end: 20110824
  3. ESCITALOPRAM [Concomitant]
     Indication: INTENTIONAL OVERDOSE
     Dosage: UNK
     Route: 048
     Dates: start: 20110824, end: 20110824
  4. AKINETON [Concomitant]
     Indication: INTENTIONAL OVERDOSE
     Dosage: UNK
     Route: 048
     Dates: start: 20110824, end: 20110824
  5. ZYPREXA [Suspect]
     Dosage: 2.5 MG, UNK
     Route: 048
     Dates: start: 20110824, end: 20110824
  6. CLONAZEPAM [Concomitant]
     Indication: INTENTIONAL OVERDOSE
     Dosage: 0.5 MG, UNK
     Route: 048
     Dates: start: 20110824, end: 20110824

REACTIONS (7)
  - DRUG INTERACTION [None]
  - BODY TEMPERATURE INCREASED [None]
  - INTENTIONAL OVERDOSE [None]
  - ASPIRATION BRONCHIAL [None]
  - ATELECTASIS [None]
  - DEPRESSED LEVEL OF CONSCIOUSNESS [None]
  - TACHYCARDIA [None]
